FAERS Safety Report 5522844-5 (Version None)
Quarter: 2007Q4

REPORT INFORMATION
  Report Type: 
  Country: None (occurrence: None)
  Receive Date: 20071115
  Receipt Date: 20071029
  Transmission Date: 20080405
  Serious: Yes (Other)
  Sender: FDA-Public Use
  Company Number: STI-2007-01841

PATIENT

DRUGS (2)
  1. CLOBETASOL (UNSPECIFIED) (CLOBETASOL PROPIONATE) (CLOBETASOL PROPIONAT [Suspect]
     Dosage: TOPICAL
     Route: 061
  2. CORTICOSTEROIDS (CORTICOSTEROIDS) [Suspect]
     Dosage: SYSTEMIC

REACTIONS (4)
  - ATROPHY [None]
  - BLEPHARITIS [None]
  - DERMATITIS ATOPIC [None]
  - DRUG DEPENDENCE [None]
